FAERS Safety Report 8767607 (Version 1)
Quarter: 2012Q4

REPORT INFORMATION
  Report Type: 
  Country: US (occurrence: US)
  Receive Date: 20120904
  Receipt Date: 20120904
  Transmission Date: 20130627
  Serious: No
  Sender: FDA-Public Use
  Company Number: US-PFIZER INC-2012213857

PATIENT
  Age: 48 Year
  Sex: Female

DRUGS (2)
  1. SOMAVERT [Suspect]
     Indication: ACROMEGALY
     Dosage: 10 mg, 2x/week
     Dates: end: 201208
  2. SOMAVERT [Suspect]
     Indication: GIGANTISM

REACTIONS (3)
  - Vision blurred [Unknown]
  - Dizziness [Unknown]
  - Influenza like illness [Unknown]
